FAERS Safety Report 4478756-1 (Version None)
Quarter: 2004Q4

REPORT INFORMATION
  Report Type: 
  Country: None (occurrence: None)
  Receive Date: 20041019
  Receipt Date: 20041004
  Transmission Date: 20050328
  Serious: Yes (Hospitalization)
  Sender: FDA-Public Use
  Company Number: US-ROCHE-382442

PATIENT
  Age: 47 Year
  Sex: Female
  Weight: 57.2 kg

DRUGS (4)
  1. PEGASYS [Suspect]
     Indication: HEPATITIS C
     Dosage: STRENGTH: 180 MCG/0.5 ML
     Route: 058
     Dates: start: 20040906, end: 20040930
  2. COPEGUS [Suspect]
     Indication: HEPATITIS C
     Route: 048
     Dates: start: 20040906, end: 20040930
  3. PREMARIN [Concomitant]
     Route: 048
  4. TAGAMET [Concomitant]
     Route: 048

REACTIONS (9)
  - DECREASED APPETITE [None]
  - DIARRHOEA [None]
  - HAEMOGLOBIN DECREASED [None]
  - HERPANGINA [None]
  - INFLUENZA LIKE ILLNESS [None]
  - MENSTRUATION IRREGULAR [None]
  - OLIGOMENORRHOEA [None]
  - WEIGHT DECREASED [None]
  - WHITE BLOOD CELL COUNT DECREASED [None]
